FAERS Safety Report 8141968-X (Version None)
Quarter: 2012Q1

REPORT INFORMATION
  Report Type: 
  Country: None (occurrence: None)
  Receive Date: 20120216
  Receipt Date: 20120215
  Transmission Date: 20120608
  Serious: Yes (Other)
  Sender: FDA-Public Use
  Company Number: US-PFIZER INC-2012036908

PATIENT
  Age: 32 Year
  Sex: Male

DRUGS (2)
  1. AZITHROMYCIN [Suspect]
     Indication: PNEUMONIA
     Dosage: 500 MG, UNK
  2. TYLENOL W/ CODEINE NO. 3 [Suspect]
     Indication: PNEUMONIA
     Dosage: UNK

REACTIONS (1)
  - RHABDOMYOLYSIS [None]
